FAERS Safety Report 16639082 (Version 1)
Quarter: 2019Q3

REPORT INFORMATION
  Report Type: Spontaneous
  Country: US (occurrence: US)
  Receive Date: 20190726
  Receipt Date: 20190726
  Transmission Date: 20191004
  Serious: No
  Sender: FDA-Public Use
  Company Number: US-TEVA-2019-US-1083571

PATIENT
  Age: 36 Year
  Sex: Female

DRUGS (15)
  1. BETAMETH DIP OIN [Concomitant]
     Route: 065
  2. CELEXA [Concomitant]
     Active Substance: CITALOPRAM HYDROBROMIDE
     Route: 065
  3. FLUCINONIDE SOL [Concomitant]
     Dosage: FORM OF ADMIN: SOLUTION
     Route: 065
  4. PRILOSEC OTC [Concomitant]
     Active Substance: OMEPRAZOLE MAGNESIUM
     Route: 065
  5. SYNTHROID [Concomitant]
     Active Substance: LEVOTHYROXINE SODIUM
     Route: 065
  6. CLOBETASOL AER [Concomitant]
     Dosage: FORM OF ADMIN: AEROSOL
     Route: 065
  7. TROKENI XR [Concomitant]
     Route: 065
  8. HYDROXYZ HCL [Concomitant]
     Active Substance: HYDROXYZINE HYDROCHLORIDE
     Route: 065
  9. VESICARE [Concomitant]
     Active Substance: SOLIFENACIN SUCCINATE
     Route: 065
  10. FISH OIL CON [Concomitant]
     Route: 065
  11. MELATONIN [Concomitant]
     Active Substance: MELATONIN
     Route: 065
  12. TRI-SPRINTEC [Concomitant]
     Active Substance: ETHINYL ESTRADIOL\NORGESTIMATE
     Route: 065
  13. VIT D [Concomitant]
     Active Substance: VITAMIN D NOS
     Route: 065
  14. COPAXONE [Suspect]
     Active Substance: GLATIRAMER ACETATE
     Indication: MULTIPLE SCLEROSIS
     Route: 058
     Dates: start: 20180504
  15. PHEDIMETRAZ [Concomitant]
     Route: 065

REACTIONS (1)
  - Injection site pruritus [Not Recovered/Not Resolved]

NARRATIVE: CASE EVENT DATE: 20190701
